FAERS Safety Report 7647855-5 (Version None)
Quarter: 2011Q3

REPORT INFORMATION
  Report Type: 
  Country: None (occurrence: None)
  Receive Date: 20110801
  Receipt Date: 20110727
  Transmission Date: 20111222
  Serious: Yes (Hospitalization, Disabling, Other)
  Sender: FDA-Public Use
  Company Number: US-SANOFI-AVENTIS-2011SA048579

PATIENT
  Age: 50 Year
  Sex: Female
  Weight: 81.6 kg

DRUGS (11)
  1. MORPHINE [Suspect]
     Route: 065
  2. NEURONTIN [Suspect]
     Route: 048
  3. HYDROCHLOROTHIAZIDE [Concomitant]
  4. PERCOCET [Concomitant]
  5. LYRICA [Suspect]
     Route: 048
  6. LASIX [Suspect]
     Route: 048
  7. GLIPIZIDE [Concomitant]
  8. LYRICA [Suspect]
     Route: 048
  9. NEURONTIN [Suspect]
     Route: 048
  10. GLUCOPHAGE [Concomitant]
  11. LANTUS [Concomitant]

REACTIONS (5)
  - OEDEMA PERIPHERAL [None]
  - ACTIVITIES OF DAILY LIVING IMPAIRED [None]
  - ARTERIAL BYPASS OPERATION [None]
  - MUSCLE SPASMS [None]
  - DIABETES MELLITUS [None]
